FAERS Safety Report 4635999-1 (Version None)
Quarter: 2005Q2

REPORT INFORMATION
  Report Type: 
  Country: None (occurrence: None)
  Receive Date: 20050415
  Receipt Date: 20041220
  Transmission Date: 20051028
  Serious: Yes (Death, Other)
  Sender: FDA-Public Use
  Company Number: US-NOVOPROD-241221

PATIENT
  Age: 1 Day
  Sex: Male
  Weight: 3 kg

DRUGS (19)
  1. NOVOSEVEN [Suspect]
     Indication: FACTOR VII DEFICIENCY
     Dosage: 80 UG/KG, SINGLE
     Route: 042
     Dates: start: 20041218, end: 20041218
  2. NOVOSEVEN [Suspect]
     Dosage: 80 UG/KG, SINGLE
     Route: 042
     Dates: start: 20041219, end: 20041219
  3. NOVOSEVEN [Suspect]
     Dosage: 80 UG/KG, SINGLE
     Route: 042
     Dates: start: 20041219, end: 20041219
  4. NOVOSEVEN [Suspect]
     Dosage: 80 UG/KG, SINGLE
     Route: 042
     Dates: start: 20041220, end: 20041220
  5. NOVOSEVEN [Suspect]
     Dosage: 80 UG/KG, SINGLE
     Route: 042
     Dates: start: 20041220, end: 20041220
  6. DOPAMINE [Concomitant]
     Indication: ILL-DEFINED DISORDER
     Dates: start: 20041217, end: 20041220
  7. AMPICILLIN [Concomitant]
     Indication: ILL-DEFINED DISORDER
     Dates: start: 20041218, end: 20041220
  8. DOBUTAMINE HCL [Concomitant]
     Indication: ILL-DEFINED DISORDER
     Dates: start: 20041218, end: 20041220
  9. CEFOTAXIME [Concomitant]
     Indication: ILL-DEFINED DISORDER
     Dates: start: 20041220, end: 20041220
  10. ACYCLOVIR [Concomitant]
     Indication: ILL-DEFINED DISORDER
     Dates: start: 20041219, end: 20041220
  11. MORPHINE SULFATE [Concomitant]
     Indication: ILL-DEFINED DISORDER
     Dates: start: 20041217, end: 20041220
  12. MIDAZOLAM HCL [Concomitant]
     Indication: ILL-DEFINED DISORDER
     Dates: start: 20041217, end: 20041220
  13. LASIX [Concomitant]
     Indication: ILL-DEFINED DISORDER
     Dates: start: 20041219, end: 20041220
  14. SODIUM BICARBONATE [Concomitant]
     Indication: ILL-DEFINED DISORDER
     Dates: start: 20041219, end: 20041220
  15. ALBUMIN (HUMAN) [Concomitant]
     Indication: ILL-DEFINED DISORDER
     Dates: start: 20041219, end: 20041219
  16. IMMUNOGLOBULIN G HUMAN [Concomitant]
     Indication: ILL-DEFINED DISORDER
     Route: 042
     Dates: start: 20041218, end: 20041219
  17. BLOOD CELLS, PACKED HUMAN [Concomitant]
     Indication: ILL-DEFINED DISORDER
     Dates: start: 20041217, end: 20041219
  18. PLATELETS [Concomitant]
     Indication: ILL-DEFINED DISORDER
     Dates: start: 20041217, end: 20041219
  19. CRYOPRECIPITATED AHF [Concomitant]
     Indication: ILL-DEFINED DISORDER
     Dosage: 2 U, UNK
     Dates: start: 20041219, end: 20041219

REACTIONS (1)
  - DISEASE PROGRESSION [None]
